FAERS Safety Report 9551262 (Version 1)
Quarter: 2013Q3

REPORT INFORMATION
  Report Type: Spontaneous
  Country: GB (occurrence: GB)
  Receive Date: 20130925
  Receipt Date: 20130925
  Transmission Date: 20140515
  Serious: Yes (Hospitalization)
  Sender: FDA-Public Use
  Company Number: GB-AMGEN-GBRSP2013066980

PATIENT
  Sex: Male

DRUGS (4)
  1. NEULASTA [Suspect]
     Indication: PRODUCT USED FOR UNKNOWN INDICATION
     Dosage: UNK
     Route: 065
  2. BLEOMYCIN [Concomitant]
     Dosage: UNK
  3. ETOPOSIDE [Concomitant]
     Dosage: UNK
  4. CISPLATIN [Concomitant]
     Dosage: UNK

REACTIONS (3)
  - Neutropenia [Unknown]
  - Bone pain [Unknown]
  - Crying [Unknown]
